FAERS Safety Report 10534988 (Version 2)
Quarter: 2014Q4

REPORT INFORMATION
  Report Type: Report from Study
  Country: US (occurrence: US)
  Receive Date: 20141022
  Receipt Date: 20141031
  Transmission Date: 20150529
  Serious: Yes (Hospitalization, Other)
  Sender: FDA-Public Use
  Company Number: US-ABBVIE-14P-163-1297180-00

PATIENT
  Sex: Male
  Weight: 77.18 kg

DRUGS (7)
  1. HUMIRA [Suspect]
     Active Substance: ADALIMUMAB
     Route: 058
  2. REMICADE [Suspect]
     Active Substance: INFLIXIMAB
     Indication: CROHN^S DISEASE
     Route: 065
  3. HUMIRA [Suspect]
     Active Substance: ADALIMUMAB
     Indication: CROHN^S DISEASE
     Route: 058
     Dates: start: 2008, end: 2008
  4. PERCOCET [Concomitant]
     Active Substance: ACETAMINOPHEN\OXYCODONE HYDROCHLORIDE
     Indication: PAIN
  5. REMICADE [Suspect]
     Active Substance: INFLIXIMAB
     Route: 065
  6. IMURAN [Concomitant]
     Active Substance: AZATHIOPRINE
     Indication: CROHN^S DISEASE
  7. HUMIRA [Suspect]
     Active Substance: ADALIMUMAB
     Route: 058
     Dates: start: 20141014, end: 20141014

REACTIONS (11)
  - Fistula [Recovered/Resolved]
  - Intestinal fistula infection [Recovered/Resolved]
  - Joint lock [Recovered/Resolved]
  - Abasia [Recovered/Resolved]
  - Abdominal pain [Recovered/Resolved]
  - Joint range of motion decreased [Recovered/Resolved]
  - Fistula [Recovered/Resolved]
  - Crohn^s disease [Unknown]
  - Depression [Recovering/Resolving]
  - Post-traumatic stress disorder [Recovering/Resolving]
  - Gastrointestinal surgery [Unknown]

NARRATIVE: CASE EVENT DATE: 2008
